FAERS Safety Report 15621339 (Version 1)
Quarter: 2018Q4

REPORT INFORMATION
  Report Type: Spontaneous
  Country: US (occurrence: US)
  Receive Date: 20181109
  Receipt Date: 20181109
  Transmission Date: 20190205
  Serious: Yes (Hospitalization, Other)
  Sender: FDA-Public Use
  Company Number: None

PATIENT
  Age: 70 Year
  Sex: Female
  Weight: 52.6 kg

DRUGS (2)
  1. SECRET [Suspect]
     Active Substance: ALUMINUM ZIRCONIUM TETRACHLOROHYDREX GLY
     Route: 061
     Dates: start: 1961, end: 201808
  2. SECRET INVISIBLE BERRY FRESH [Suspect]
     Active Substance: ALUMINUM ZIRCONIUM TRICHLOROHYDREX GLY
     Route: 061
     Dates: end: 201808

REACTIONS (1)
  - Breast cancer [None]

NARRATIVE: CASE EVENT DATE: 2014
